FAERS Safety Report 15219943 (Version 1)
Quarter: 2018Q3

REPORT INFORMATION
  Report Type: Spontaneous
  Country: US (occurrence: US)
  Receive Date: 20180731
  Receipt Date: 20180731
  Transmission Date: 20181010
  Serious: No
  Sender: FDA-Public Use
  Company Number: US-AMGEN-USASP2018102627

PATIENT
  Age: 60 Year
  Sex: Female

DRUGS (5)
  1. MTX [Suspect]
     Active Substance: METHOTREXATE SODIUM
     Indication: PRODUCT USED FOR UNKNOWN INDICATION
     Route: 065
  2. ENBREL [Suspect]
     Active Substance: ETANERCEPT
     Indication: RHEUMATOID ARTHRITIS
     Dosage: UNK
     Route: 065
  3. XELJANZ XR [Suspect]
     Active Substance: TOFACITINIB CITRATE
     Indication: PRODUCT USED FOR UNKNOWN INDICATION
     Dosage: 11 MG, QD
     Route: 065
  4. HUMIRA [Concomitant]
     Active Substance: ADALIMUMAB
  5. ORENCIA [Concomitant]
     Active Substance: ABATACEPT

REACTIONS (6)
  - Arthralgia [Unknown]
  - Nausea [Unknown]
  - Loss of personal independence in daily activities [Unknown]
  - Synovitis [Unknown]
  - Treatment failure [Unknown]
  - Drug hypersensitivity [Unknown]
